FAERS Safety Report 7574808-8 (Version None)
Quarter: 2011Q2

REPORT INFORMATION
  Report Type: 
  Country: None (occurrence: None)
  Receive Date: 20110627
  Receipt Date: 20110615
  Transmission Date: 20111010
  Serious: No
  Sender: FDA-Public Use
  Company Number: US-BAYER-2011-051761

PATIENT
  Sex: Female

DRUGS (1)
  1. BEYAZ [Suspect]
     Indication: PRODUCT USED FOR UNKNOWN INDICATION

REACTIONS (3)
  - MENSTRUATION IRREGULAR [None]
  - MENORRHAGIA [None]
  - MENSTRUATION DELAYED [None]
